FAERS Safety Report 6021427-0 (Version None)
Quarter: 2008Q4

REPORT INFORMATION
  Report Type: 
  Country: None (occurrence: None)
  Receive Date: 20081229
  Receipt Date: 20081222
  Transmission Date: 20090506
  Serious: Yes (Hospitalization, Other)
  Sender: FDA-Public Use
  Company Number: D0059994A

PATIENT
  Sex: Male
  Weight: 72 kg

DRUGS (5)
  1. ACYCLOVIR [Suspect]
     Indication: HERPES ZOSTER
     Dosage: 800MG FIVE TIMES PER DAY
     Route: 048
     Dates: start: 20080914, end: 20081008
  2. ASPIRIN [Concomitant]
     Dosage: 100MG PER DAY
     Route: 048
  3. DILATREND [Concomitant]
     Dosage: 12.5MG TWICE PER DAY
     Route: 048
     Dates: start: 20050101
  4. MANINIL [Concomitant]
     Dosage: 3.5MG PER DAY
     Route: 048
     Dates: start: 20040101
  5. RAMIPRIL [Concomitant]
     Dosage: 2.5MG PER DAY
     Route: 048
     Dates: start: 20070701

REACTIONS (1)
  - COOMBS POSITIVE HAEMOLYTIC ANAEMIA [None]
